FAERS Safety Report 20889802 (Version 1)
Quarter: 2022Q2

REPORT INFORMATION
  Report Type: Spontaneous
  Country: IT (occurrence: IT)
  Receive Date: 20220530
  Receipt Date: 20220530
  Transmission Date: 20220721
  Serious: Yes (Hospitalization)
  Sender: FDA-Public Use
  Company Number: IT-LUPIN PHARMACEUTICALS INC.-2022-07660

PATIENT
  Age: 6 Year
  Sex: Female

DRUGS (4)
  1. CEFIXIME [Suspect]
     Active Substance: CEFIXIME
     Indication: Product used for unknown indication
     Dosage: UNK
     Route: 065
  2. AMOXICILLIN [Concomitant]
     Active Substance: AMOXICILLIN
     Indication: Product used for unknown indication
     Dosage: UNK
     Route: 048
  3. HYDROCORTISONE [Concomitant]
     Active Substance: HYDROCORTISONE
     Indication: Enterocolitis
     Dosage: UNK
     Route: 042
  4. SALINE [Concomitant]
     Active Substance: SODIUM CHLORIDE
     Indication: Enterocolitis
     Dosage: UNK
     Route: 042

REACTIONS (1)
  - Urticaria [Unknown]
